FAERS Safety Report 4879577-8 (Version None)
Quarter: 2006Q1

REPORT INFORMATION
  Report Type: 
  Country: None (occurrence: None)
  Receive Date: 20060113
  Receipt Date: 20060105
  Transmission Date: 20060701
  Serious: Yes (Hospitalization)
  Sender: FDA-Public Use
  Company Number: JP-AVENTIS-200610187GDDC

PATIENT
  Age: 28 Year
  Sex: Female

DRUGS (10)
  1. FLUMARK [Suspect]
     Indication: ENTEROCOLITIS
     Route: 048
     Dates: start: 20050719, end: 20050725
  2. CLARITHROMYCIN [Concomitant]
     Dosage: DOSE: UNK
     Dates: start: 20010423
  3. KIMO TAB [Concomitant]
  4. ASTOMIN [Concomitant]
  5. CYSCARBON [Concomitant]
  6. LOBU [Concomitant]
  7. BIOFERMIN [Concomitant]
  8. CIPROXAN [Concomitant]
  9. TORSEMIDE [Concomitant]
  10. CEFSPAN [Concomitant]

REACTIONS (3)
  - EOSINOPHILIA [None]
  - OEDEMA PERIPHERAL [None]
  - WHITE BLOOD CELL COUNT INCREASED [None]
